FAERS Safety Report 9311734 (Version 1)
Quarter: 2013Q2

REPORT INFORMATION
  Report Type: Spontaneous
  Country: GR (occurrence: GR)
  Receive Date: 20130528
  Receipt Date: 20130528
  Transmission Date: 20140414
  Serious: Yes (Hospitalization, Other)
  Sender: FDA-Public Use
  Company Number: GR-PFIZER INC-2013131038

PATIENT
  Age: 67 Year
  Sex: Male

DRUGS (1)
  1. ZYVOXID [Suspect]
     Indication: ARTHRITIS BACTERIAL
     Dosage: 600 MG, 2X/DAY
     Route: 048
     Dates: start: 201303, end: 201303

REACTIONS (2)
  - Tongue discolouration [Recovered/Resolved]
  - Pseudomonas infection [Unknown]
